FAERS Safety Report 7363495-X (Version None)
Quarter: 2011Q1

REPORT INFORMATION
  Report Type: 
  Country: None (occurrence: None)
  Receive Date: 20110321
  Receipt Date: 20110221
  Transmission Date: 20110831
  Serious: No
  Sender: FDA-Public Use
  Company Number: US-B.I. PHARMACEUTICALS,INC./RIDGEFIELD-2011-BP-06467BP

PATIENT
  Sex: Male

DRUGS (7)
  1. PRADAXA [Suspect]
     Indication: ATRIAL FIBRILLATION
     Dosage: 300 MG
     Route: 048
     Dates: start: 20110202, end: 20110210
  2. LIPITOR [Concomitant]
     Indication: BLOOD CHOLESTEROL INCREASED
  3. CARVEDILOL [Concomitant]
     Indication: HYPERTENSION
  4. PRADAXA [Suspect]
     Dosage: 150 MG
     Route: 048
     Dates: start: 20110211
  5. RAMIPRIL [Concomitant]
     Indication: HYPERTENSION
  6. FUROSEMIDE [Concomitant]
     Indication: CARDIAC FAILURE CONGESTIVE
  7. LIPITOR [Concomitant]
     Indication: PROPHYLAXIS

REACTIONS (3)
  - HYPOAESTHESIA [None]
  - RECTAL HAEMORRHAGE [None]
  - OEDEMA PERIPHERAL [None]
